FAERS Safety Report 9797730 (Version 1)
Quarter: 2014Q1

REPORT INFORMATION
  Report Type: Spontaneous
  Country: US (occurrence: US)
  Receive Date: 20140106
  Receipt Date: 20140106
  Transmission Date: 20141002
  Serious: Yes (Other)
  Sender: FDA-Public Use
  Company Number: US-PFIZER INC-2014002059

PATIENT
  Age: 60 Year
  Sex: Female
  Weight: 83.9 kg

DRUGS (4)
  1. XANAX [Suspect]
     Dosage: UNK
     Route: 048
  2. EFFEXOR [Concomitant]
     Dosage: UNK
  3. PROZAC [Concomitant]
     Dosage: UNK
  4. SYNTHROID [Concomitant]
     Indication: AUTOIMMUNE THYROIDITIS
     Dosage: UNK

REACTIONS (10)
  - Haemorrhage [Unknown]
  - Abasia [Unknown]
  - Arrhythmia [Unknown]
  - Drug dependence [Unknown]
  - Malaise [Unknown]
  - Panic attack [Unknown]
  - Drug ineffective [Unknown]
  - Blood pressure decreased [Unknown]
  - Therapeutic response unexpected [Unknown]
  - Anxiety [Unknown]
